FAERS Safety Report 4427319-2 (Version None)
Quarter: 2004Q3

REPORT INFORMATION
  Report Type: 
  Country: None (occurrence: None)
  Receive Date: 20040813
  Receipt Date: 20040813
  Transmission Date: 20050211
  Serious: Yes (Hospitalization)
  Sender: FDA-Public Use
  Company Number: None

PATIENT
  Age: 60 Year
  Sex: Female
  Weight: 79.3795 kg

DRUGS (12)
  1. DILANTIN [Suspect]
     Indication: BRAIN NEOPLASM MALIGNANT
     Dates: start: 20040601, end: 20040726
  2. DILANTIN [Suspect]
     Indication: CONVULSION PROPHYLAXIS
     Dates: start: 20040601, end: 20040726
  3. DILANTIN [Suspect]
     Indication: RADIOTHERAPY
     Dates: start: 20040601, end: 20040726
  4. PROZAC [Concomitant]
  5. TRAZODONE [Concomitant]
  6. THYROID TAB [Concomitant]
  7. XANAX [Concomitant]
  8. ZOFRAN [Concomitant]
  9. TEMODAR [Concomitant]
  10. DIFLUCAN [Concomitant]
  11. BENADRYL [Concomitant]
  12. LIPITOR [Concomitant]

REACTIONS (1)
  - STEVENS-JOHNSON SYNDROME [None]
